FAERS Safety Report 24074467 (Version 1)
Quarter: 2024Q3

REPORT INFORMATION
  Report Type: Spontaneous
  Country: DE (occurrence: DE)
  Receive Date: 20240710
  Receipt Date: 20240710
  Transmission Date: 20241016
  Serious: Yes (Other)
  Sender: PIERRE FABRE MEDICAMENT
  Company Number: DE-DCGMA-24202820

PATIENT
  Age: 8 Month
  Sex: Male
  Weight: 9 kg

DRUGS (1)
  1. PROPRANOLOL [Suspect]
     Active Substance: PROPRANOLOL HYDROCHLORIDE
     Indication: Infantile haemangioma
     Dosage: 12 MG
     Route: 048

REACTIONS (5)
  - Loss of consciousness [Recovered/Resolved]
  - Crying [Recovered/Resolved]
  - Breath holding [Recovered/Resolved]
  - Product administered to patient of inappropriate age [Unknown]
  - Off label use [Unknown]

NARRATIVE: CASE EVENT DATE: 20231109
